FAERS Safety Report 9216444 (Version 1)
Quarter: 2013Q2

REPORT INFORMATION
  Report Type: Spontaneous
  Country: US (occurrence: US)
  Receive Date: 20130408
  Receipt Date: 20130408
  Transmission Date: 20140414
  Serious: Yes (Hospitalization)
  Sender: FDA-Public Use
  Company Number: US-JNJFOC-20130401297

PATIENT
  Sex: Female

DRUGS (1)
  1. VISINE [Suspect]
     Indication: POISONING DELIBERATE
     Dosage: 20 BOTTLES
     Route: 048
     Dates: start: 201207, end: 201211

REACTIONS (12)
  - Poisoning [Unknown]
  - Hypertension [Unknown]
  - Blood pressure decreased [Unknown]
  - Body temperature decreased [Unknown]
  - Dyspnoea [Unknown]
  - Vision blurred [Unknown]
  - Nausea [Unknown]
  - Vomiting [Unknown]
  - Tremor [Unknown]
  - Rectal haemorrhage [Unknown]
  - Victim of crime [None]
  - Blood pressure fluctuation [None]
